FAERS Safety Report 11872144 (Version 2)
Quarter: 2016Q3

REPORT INFORMATION
  Report Type: Spontaneous
  Country: US (occurrence: US)
  Receive Date: 20151228
  Receipt Date: 20160913
  Transmission Date: 20161109
  Serious: No
  Sender: FDA-Public Use
  Company Number: US-PFIZER INC-2015463134

PATIENT
  Age: 54 Year
  Sex: Male
  Weight: 113.4 kg

DRUGS (7)
  1. WELLBUTRIN [Concomitant]
     Active Substance: BUPROPION HYDROCHLORIDE
     Indication: DEPRESSION
     Dosage: 75 MG (ONE TABLET), 1X/DAY
  2. CLONAZEPAM. [Concomitant]
     Active Substance: CLONAZEPAM
     Indication: ANXIETY
     Dosage: 1 TABLET, 2X/DAY (IN THE MORNING AND IN THE EVENING)
  3. ABILIFY [Concomitant]
     Active Substance: ARIPIPRAZOLE
     Indication: DEPRESSION
     Dosage: 10 MG (ONE TABLET), 1X/DAY, (IN MORNING)
     Route: 048
     Dates: start: 2016
  4. CELEXA [Concomitant]
     Active Substance: CITALOPRAM HYDROBROMIDE
     Indication: DEPRESSION
     Dosage: 40 MG (ONE TABLET), 1X/DAY
     Dates: start: 2016
  5. LYRICA [Suspect]
     Active Substance: PREGABALIN
     Dosage: 300 MG, 2X/DAY
     Route: 048
  6. LYRICA [Suspect]
     Active Substance: PREGABALIN
     Indication: NERVE INJURY
     Dosage: 300 MG, 3X/DAY
  7. CLONAZEPAM. [Concomitant]
     Active Substance: CLONAZEPAM
     Dosage: TWO TABLETS, 1X/DAY (BEDTIME)

REACTIONS (10)
  - Spinal deformity [Unknown]
  - Pain [Unknown]
  - Neck pain [Unknown]
  - Bone pain [Unknown]
  - Muscle twitching [Unknown]
  - Anxiety [Not Recovered/Not Resolved]
  - Discomfort [Recovering/Resolving]
  - Intentional product use issue [Unknown]
  - Condition aggravated [Not Recovered/Not Resolved]
  - Drug prescribing error [Unknown]

NARRATIVE: CASE EVENT DATE: 20160905
